FAERS Safety Report 7467005-8 (Version None)
Quarter: 2011Q2

REPORT INFORMATION
  Report Type: 
  Country: None (occurrence: None)
  Receive Date: 20110509
  Receipt Date: 20110509
  Transmission Date: 20111010
  Serious: Yes (Other)
  Sender: FDA-Public Use
  Company Number: JP-PFIZER INC-2011098353

PATIENT

DRUGS (1)
  1. CABERGOLINE [Suspect]
     Dosage: 0.5 MG, WEEKLY
     Route: 048
     Dates: start: 20080801

REACTIONS (1)
  - BLEPHAROSPASM [None]
